FAERS Safety Report 6773279-9 (Version None)
Quarter: 2010Q2

REPORT INFORMATION
  Report Type: 
  Country: None (occurrence: None)
  Receive Date: 20100614
  Receipt Date: 20100607
  Transmission Date: 20101027
  Serious: Yes (Hospitalization)
  Sender: FDA-Public Use
  Company Number: 2010SP031778

PATIENT
  Age: 20 Year
  Sex: Male

DRUGS (9)
  1. REMERGIL (MIRTAZAPINE /01293201/) [Suspect]
     Indication: DEPRESSION
     Dosage: 45 MG; QD; PO
     Route: 048
     Dates: start: 20100315
  2. REMERGIL (MIRTAZAPINE /01293201/) [Suspect]
     Indication: POST-TRAUMATIC STRESS DISORDER
     Dosage: 45 MG; QD; PO
     Route: 048
     Dates: start: 20100315
  3. SEROQUEL [Suspect]
     Indication: DEPRESSION
     Dosage: 50 MG;QD;PO, 100 MG;QD;PO, 300 MG;QD;PO
     Route: 048
     Dates: start: 20100315, end: 20100315
  4. SEROQUEL [Suspect]
     Indication: POST-TRAUMATIC STRESS DISORDER
     Dosage: 50 MG;QD;PO, 100 MG;QD;PO, 300 MG;QD;PO
     Route: 048
     Dates: start: 20100315, end: 20100315
  5. SEROQUEL [Suspect]
     Indication: DEPRESSION
     Dosage: 50 MG;QD;PO, 100 MG;QD;PO, 300 MG;QD;PO
     Route: 048
     Dates: start: 20100316, end: 20100316
  6. SEROQUEL [Suspect]
     Indication: POST-TRAUMATIC STRESS DISORDER
     Dosage: 50 MG;QD;PO, 100 MG;QD;PO, 300 MG;QD;PO
     Route: 048
     Dates: start: 20100316, end: 20100316
  7. SEROQUEL [Suspect]
     Indication: DEPRESSION
     Dosage: 50 MG;QD;PO, 100 MG;QD;PO, 300 MG;QD;PO
     Route: 048
     Dates: start: 20100317, end: 20100317
  8. SEROQUEL [Suspect]
     Indication: POST-TRAUMATIC STRESS DISORDER
     Dosage: 50 MG;QD;PO, 100 MG;QD;PO, 300 MG;QD;PO
     Route: 048
     Dates: start: 20100317, end: 20100317
  9. CITALOPRAM (CON.) [Concomitant]

REACTIONS (2)
  - EPISTAXIS [None]
  - LOSS OF CONSCIOUSNESS [None]
